FAERS Safety Report 4479282-6 (Version None)
Quarter: 2004Q4

REPORT INFORMATION
  Report Type: 
  Country: None (occurrence: None)
  Receive Date: 20041015
  Receipt Date: 20041002
  Transmission Date: 20050328
  Serious: Yes (Other)
  Sender: FDA-Public Use
  Company Number: 2004075440

PATIENT
  Sex: Female

DRUGS (6)
  1. FELDENE [Suspect]
     Indication: ILL-DEFINED DISORDER
  2. CELECOXIB (CELECOXIB) [Suspect]
     Indication: ILL-DEFINED DISORDER
     Dosage: 400 MG (200 MG, 2 IN 1 D)
  3. SULINDAC [Suspect]
     Indication: ILL-DEFINED DISORDER
  4. NAPROXEN [Suspect]
     Indication: ILL-DEFINED DISORDER
  5. NABUMETONE [Suspect]
     Indication: ILL-DEFINED DISORDER
  6. ALL OTHER THERAPEUTIC PRODUCTS [Suspect]
     Indication: ILL-DEFINED DISORDER

REACTIONS (3)
  - ALOPECIA [None]
  - CARCINOMA [None]
  - DRUG EFFECT DECREASED [None]
